FAERS Safety Report 13786421 (Version 1)
Quarter: 2017Q3

REPORT INFORMATION
  Report Type: Spontaneous
  Country: US (occurrence: US)
  Receive Date: 20170725
  Receipt Date: 20170725
  Transmission Date: 20171127
  Serious: Yes (Other)
  Sender: FDA-Public Use
  Company Number: None

PATIENT
  Age: 39 Year
  Sex: Female
  Weight: 83.25 kg

DRUGS (2)
  1. DEFIBRILLATOR [Concomitant]
  2. ATOMOXETINE HCL 80 MG [Suspect]
     Active Substance: ATOMOXETINE HYDROCHLORIDE
     Indication: PRODUCT USED FOR UNKNOWN INDICATION
     Dosage: ?          QUANTITY:2 CAPSULE(S);    40 MG?
     Route: 048
     Dates: start: 20160626, end: 20170626

REACTIONS (1)
  - Restless legs syndrome [None]

NARRATIVE: CASE EVENT DATE: 20170626
